FAERS Safety Report 24563611 (Version 1)
Quarter: 2024Q4

REPORT INFORMATION
  Report Type: Spontaneous
  Country: US (occurrence: US)
  Receive Date: 20241030
  Receipt Date: 20241030
  Transmission Date: 20250115
  Serious: No
  Sender: MERCK
  Company Number: US-009507513-2410USA009616

PATIENT
  Sex: Female
  Weight: 70.7 kg

DRUGS (17)
  1. WINREVAIR [Suspect]
     Active Substance: SOTATERCEPT-CSRK
     Indication: Product used for unknown indication
     Dosage: UNK
  2. REMODULIN [Concomitant]
     Active Substance: TREPROSTINIL
     Indication: Pulmonary arterial hypertension
     Dosage: UNK, CONTINUING
     Route: 058
     Dates: start: 20221012
  3. REMODULIN [Concomitant]
     Active Substance: TREPROSTINIL
     Dosage: 0.04467 ?G/KG (SELF-FILL CASSETTE WITH 3 ML, RATE OF 40 MCL PER HOUR), CONTINUING
     Route: 058
  4. FUROSEMIDE [Concomitant]
     Active Substance: FUROSEMIDE
  5. SPIRONOLACTONE [Concomitant]
     Active Substance: SPIRONOLACTONE
  6. AMITRIPTYLINE HYDROCHLORIDE [Concomitant]
     Active Substance: AMITRIPTYLINE HYDROCHLORIDE
  7. CLONIDINE [Concomitant]
     Active Substance: CLONIDINE
  8. GABAPENTIN [Concomitant]
     Active Substance: GABAPENTIN
  9. KETAMINE [Concomitant]
     Active Substance: KETAMINE
  10. KETOPROFEN [Concomitant]
     Active Substance: KETOPROFEN
  11. LECITHIN [Concomitant]
     Active Substance: LECITHIN
  12. LIDOCAINE [Concomitant]
     Active Substance: LIDOCAINE
  13. POLOXAMER [Concomitant]
     Active Substance: POLOXAMER
  14. AMBRISENTAN [Concomitant]
     Active Substance: AMBRISENTAN
  15. SENNA S [Concomitant]
     Active Substance: DOCUSATE SODIUM\SENNA LEAF
  16. SILDENAFIL [Concomitant]
     Active Substance: SILDENAFIL
  17. INSULIN ASPART [Concomitant]
     Active Substance: INSULIN ASPART

REACTIONS (1)
  - Therapeutic response unexpected [Unknown]
